FAERS Safety Report 9256020 (Version 1)
Quarter: 2013Q2

REPORT INFORMATION
  Report Type: Spontaneous
  Country: US (occurrence: US)
  Receive Date: 20130425
  Receipt Date: 20130425
  Transmission Date: 20140414
  Serious: Yes (Hospitalization)
  Sender: FDA-Public Use
  Company Number: US-MERCK-1304USA014729

PATIENT
  Age: 54 Year
  Sex: Male

DRUGS (5)
  1. JANUVIA [Suspect]
     Indication: DIABETES MELLITUS
     Dosage: 100 MG, QD
     Route: 048
     Dates: start: 2003
  2. GLUCOPHAGE [Concomitant]
  3. INSULIN [Concomitant]
  4. NOVOLOG [Concomitant]
  5. LANTUS [Concomitant]

REACTIONS (12)
  - Nephrolithiasis [Unknown]
  - Pain [Unknown]
  - Renal stone removal [Unknown]
  - Life support [Unknown]
  - Post procedural complication [Unknown]
  - Blood pressure diastolic decreased [Unknown]
  - Apparent death [Unknown]
  - Movement disorder [Unknown]
  - Renal stone removal [Unknown]
  - Apnoea [Unknown]
  - Life support [Unknown]
  - Apparent death [Unknown]
